FAERS Safety Report 11263307 (Version 1)
Quarter: 2015Q3

REPORT INFORMATION
  Report Type: Spontaneous
  Country: CA (occurrence: CA)
  Receive Date: 20150712
  Receipt Date: 20150712
  Transmission Date: 20151125
  Serious: Yes (Hospitalization)
  Sender: FDA-Public Use
  Company Number: CA-JNJFOC-20150702511

PATIENT
  Sex: Female
  Weight: 71 kg

DRUGS (6)
  1. METHOTREXATE [Concomitant]
     Active Substance: METHOTREXATE
     Route: 065
  2. MICRONOR [Suspect]
     Active Substance: NORETHINDRONE
     Indication: DYSMENORRHOEA
     Route: 065
  3. ACETAMINOPHEN. [Concomitant]
     Active Substance: ACETAMINOPHEN
     Indication: PREMEDICATION
     Route: 048
  4. MICRONOR [Suspect]
     Active Substance: NORETHINDRONE
     Indication: MENSTRUAL DISORDER
     Route: 065
  5. BENADRYL [Concomitant]
     Active Substance: DIPHENHYDRAMINE HYDROCHLORIDE
     Indication: PREMEDICATION
     Route: 048
  6. METHOTREXATE [Concomitant]
     Active Substance: METHOTREXATE
     Route: 065

REACTIONS (4)
  - Dysmenorrhoea [Recovering/Resolving]
  - Gastric ulcer [Recovering/Resolving]
  - Product use issue [Unknown]
  - Drug ineffective for unapproved indication [Unknown]
